FAERS Safety Report 6742073-7 (Version None)
Quarter: 2010Q2

REPORT INFORMATION
  Report Type: 
  Country: None (occurrence: None)
  Receive Date: 20100526
  Receipt Date: 20100513
  Transmission Date: 20101027
  Serious: Yes (Hospitalization, Other)
  Sender: FDA-Public Use
  Company Number: PHHY2009IT41424

PATIENT
  Age: 30 Year
  Sex: Male

DRUGS (2)
  1. EXJADE [Suspect]
     Dosage: 20MG/KG/DAY
     Route: 048
  2. ASPIRIN [Suspect]
     Dosage: 100 MG, UNK

REACTIONS (5)
  - CARDIAC DISCOMFORT [None]
  - DUODENAL ULCER [None]
  - GASTRIC ULCER [None]
  - GASTRITIS [None]
  - UPPER GASTROINTESTINAL HAEMORRHAGE [None]
